FAERS Safety Report 4438216-0 (Version None)
Quarter: 2004Q3

REPORT INFORMATION
  Report Type: 
  Country: None (occurrence: None)
  Receive Date: 20040831
  Receipt Date: 20040617
  Transmission Date: 20050211
  Serious: No
  Sender: FDA-Public Use
  Company Number: US-GLAXOSMITHKLINE-A0515154A

PATIENT
  Age: 42 Year
  Sex: Female

DRUGS (2)
  1. WELLBUTRIN [Suspect]
     Dosage: 300MG TWICE PER DAY
     Route: 048
     Dates: start: 20040501
  2. NICOTINE TRANSDERMAL PATCH [Concomitant]

REACTIONS (3)
  - DIZZINESS [None]
  - PSYCHOMOTOR HYPERACTIVITY [None]
  - RESPIRATORY SIGHS [None]
